FAERS Safety Report 15936816 (Version 1)
Quarter: 2019Q1

REPORT INFORMATION
  Report Type: Spontaneous
  Country: ES (occurrence: ES)
  Receive Date: 20190208
  Receipt Date: 20190208
  Transmission Date: 20190417
  Serious: Yes (Other)
  Sender: FDA-Public Use
  Company Number: ES-AUROBINDO-AUR-APL-2019-006517

PATIENT

DRUGS (4)
  1. SUCCINYLCHOLINE [Suspect]
     Active Substance: SUCCINYLCHOLINE
     Indication: PRODUCT USED FOR UNKNOWN INDICATION
     Dosage: UNK
     Route: 065
  2. FENTANYL. [Suspect]
     Active Substance: FENTANYL
     Indication: EPIDURAL ANALGESIA
     Dosage: UNK
     Route: 040
  3. PROPOFOL. [Suspect]
     Active Substance: PROPOFOL
     Indication: PRODUCT USED FOR UNKNOWN INDICATION
     Dosage: UNK
     Route: 042
  4. BUPIVACAINE SOLUTION FOR INJECTION [Suspect]
     Active Substance: BUPIVACAINE
     Indication: EPIDURAL ANALGESIA
     Dosage: UNK
     Route: 008

REACTIONS (6)
  - Horner^s syndrome [Recovered/Resolved]
  - Hypotension [Recovered/Resolved]
  - Sensory disturbance [Recovered/Resolved]
  - Paresis [Recovered/Resolved]
  - Dyspnoea [Recovered/Resolved]
  - Anaesthetic complication [Recovered/Resolved]
